FAERS Safety Report 20128331 (Version 3)
Quarter: 2022Q1

REPORT INFORMATION
  Report Type: Spontaneous
  Country: IT (occurrence: IT)
  Receive Date: 20211130
  Receipt Date: 20220128
  Transmission Date: 20220423
  Serious: Yes (Hospitalization, Other)
  Sender: FDA-Public Use
  Company Number: IT-SUN PHARMACEUTICAL INDUSTRIES LTD-2021RR-318659

PATIENT
  Age: 55 Year
  Sex: Male
  Weight: 80 kg

DRUGS (4)
  1. FINGOLIMOD [Suspect]
     Active Substance: FINGOLIMOD
     Indication: Multiple sclerosis
     Dosage: UNK
     Route: 065
     Dates: start: 2011, end: 20200327
  2. FINGOLIMOD [Suspect]
     Active Substance: FINGOLIMOD
     Dosage: 0.5 MILLIGRAM
     Route: 065
     Dates: start: 20200513
  3. LOPINAVIR\RITONAVIR [Suspect]
     Active Substance: LOPINAVIR\RITONAVIR
     Indication: COVID-19
     Dosage: UNK
     Route: 065
  4. HYDROXYCHLOROQUINE [Suspect]
     Active Substance: HYDROXYCHLOROQUINE
     Indication: COVID-19
     Dosage: UNK
     Route: 065

REACTIONS (2)
  - Atrioventricular block [Recovered/Resolved]
  - Off label use [Unknown]
